FAERS Safety Report 13085202 (Version 1)
Quarter: 2017Q1

REPORT INFORMATION
  Report Type: Spontaneous
  Country: US (occurrence: US)
  Receive Date: 20170104
  Receipt Date: 20170104
  Transmission Date: 20170428
  Serious: No
  Sender: FDA-Public Use
  Company Number: US-TEVA-716669USA

PATIENT
  Age: 68 Year
  Sex: Female
  Weight: 60.38 kg

DRUGS (6)
  1. PREDNISONE. [Concomitant]
     Active Substance: PREDNISONE
     Indication: WHEEZING
  2. QVAR [Suspect]
     Active Substance: BECLOMETHASONE DIPROPIONATE
     Indication: COUGH
  3. QVAR [Suspect]
     Active Substance: BECLOMETHASONE DIPROPIONATE
     Indication: ASTHMA
  4. QVAR [Suspect]
     Active Substance: BECLOMETHASONE DIPROPIONATE
     Indication: BRONCHITIS
  5. QVAR [Suspect]
     Active Substance: BECLOMETHASONE DIPROPIONATE
     Indication: WHEEZING
     Dosage: 4 DOSAGE FORMS DAILY; 2 PUFFS
     Dates: start: 20161122, end: 20161122
  6. PROAIR HFA [Suspect]
     Active Substance: ALBUTEROL SULFATE
     Indication: WHEEZING
     Dosage: TWO PUFFS EVERY SIX HOURS AS NEEDED
     Dates: start: 2015

REACTIONS (5)
  - Oral mucosal discolouration [Unknown]
  - Pulmonary function test abnormal [Unknown]
  - Cough [Unknown]
  - Tongue discolouration [Unknown]
  - Oral discomfort [Unknown]

NARRATIVE: CASE EVENT DATE: 20161107
